FAERS Safety Report 9193865 (Version 3)
Quarter: 2013Q2

REPORT INFORMATION
  Report Type: Spontaneous
  Country: FR (occurrence: FR)
  Receive Date: 20130327
  Receipt Date: 20130605
  Transmission Date: 20140414
  Serious: Yes (Hospitalization)
  Sender: FDA-Public Use
  Company Number: FR-ALLERGAN-1304033US

PATIENT
  Age: 51 Year
  Sex: Female
  Weight: 62 kg

DRUGS (7)
  1. VISTABEL [Suspect]
     Indication: SKIN WRINKLING
     Dosage: 20 UNITS, SINGLE
     Route: 030
     Dates: start: 20130126, end: 20130126
  2. VISTABEL [Suspect]
     Indication: SKIN WRINKLING
     Dosage: 50 UNITS, SINGLE
     Dates: start: 2009, end: 2009
  3. VISTABEL [Suspect]
     Indication: SKIN WRINKLING
     Dosage: 12 UNITS, SINGLE
     Dates: start: 20130126, end: 20130126
  4. VISTABEL [Suspect]
     Dosage: 16 UNITS, SINGLE
     Dates: start: 20130126, end: 20130126
  5. JUVEDERM ULTRA 4 [Suspect]
     Indication: PRODUCT USED FOR UNKNOWN INDICATION
     Dosage: UNK UNK, SINGLE
     Dates: start: 20130126, end: 20130126
  6. JUVEDERM ULTRA 4 [Suspect]
  7. UNSPECIFIED INGREDIENTS [Suspect]
     Indication: PRODUCT USED FOR UNKNOWN INDICATION
     Dosage: UNK
     Dates: start: 20130126, end: 20130126

REACTIONS (5)
  - Oedema [Not Recovered/Not Resolved]
  - Cellulitis [Not Recovered/Not Resolved]
  - Trismus [Not Recovered/Not Resolved]
  - Myositis [Not Recovered/Not Resolved]
  - Muscle hypertrophy [Unknown]
